FAERS Safety Report 6567371-1 (Version None)
Quarter: 2010Q1

REPORT INFORMATION
  Report Type: 
  Country: None (occurrence: None)
  Receive Date: 20100202
  Receipt Date: 20100125
  Transmission Date: 20100710
  Serious: Yes (Life-Threatening, Hospitalization)
  Sender: FDA-Public Use
  Company Number: PHHY2009DE32955

PATIENT
  Age: 78 Year
  Sex: Male
  Weight: 90 kg

DRUGS (4)
  1. DIOVAN HCT [Suspect]
     Dosage: 40/6.25 MG
     Route: 048
     Dates: end: 20090415
  2. FALITHROM [Suspect]
     Indication: ATRIAL FIBRILLATION
     Dosage: 3 MG
     Route: 048
     Dates: end: 20090415
  3. TORASEMIDE [Suspect]
     Indication: HYPERTENSION
     Dosage: UNK
     Route: 048
     Dates: end: 20090415
  4. TAMSULOSIN [Suspect]
     Indication: BENIGN PROSTATIC HYPERPLASIA
     Dosage: UNK
     Route: 048
     Dates: end: 20090415

REACTIONS (13)
  - ABDOMINAL PAIN [None]
  - BLOOD AMYLASE INCREASED [None]
  - BLOOD GLUCOSE INCREASED [None]
  - BLOOD UREA INCREASED [None]
  - C-REACTIVE PROTEIN INCREASED [None]
  - GALLBLADDER NON-FUNCTIONING [None]
  - HYPERHIDROSIS [None]
  - LIPASE INCREASED [None]
  - NAUSEA [None]
  - OEDEMATOUS PANCREATITIS [None]
  - PLATELET COUNT INCREASED [None]
  - PROTHROMBIN TIME PROLONGED [None]
  - WHITE BLOOD CELL COUNT INCREASED [None]
